FAERS Safety Report 25022617 (Version 2)
Quarter: 2025Q2

REPORT INFORMATION
  Report Type: Spontaneous
  Country: RU (occurrence: RU)
  Receive Date: 20250228
  Receipt Date: 20250429
  Transmission Date: 20250717
  Serious: Yes (Life-Threatening)
  Sender: SERVIER
  Company Number: RU-SERVIER-S25002559

PATIENT

DRUGS (1)
  1. ONCASPAR [Suspect]
     Active Substance: PEGASPARGASE
     Indication: Acute lymphocytic leukaemia
     Route: 042
     Dates: start: 20241229, end: 20241229

REACTIONS (3)
  - Venous thrombosis [Recovered/Resolved]
  - Arterial thrombosis [Recovered/Resolved]
  - Pulmonary microemboli [Recovered/Resolved]

NARRATIVE: CASE EVENT DATE: 20250130
